FAERS Safety Report 12369205 (Version 1)
Quarter: 2016Q2

REPORT INFORMATION
  Report Type: Report from Study
  Country: BR (occurrence: BR)
  Receive Date: 20160513
  Receipt Date: 20160513
  Transmission Date: 20160815
  Serious: Yes (Other)
  Sender: FDA-Public Use
  Company Number: BR-ABBVIE-16K-020-1624904-00

PATIENT
  Sex: Female
  Weight: 68 kg

DRUGS (7)
  1. HUMIRA [Suspect]
     Active Substance: ADALIMUMAB
     Route: 058
     Dates: end: 20160408
  2. SIMVASTATIN. [Concomitant]
     Active Substance: SIMVASTATIN
     Indication: BLOOD CHOLESTEROL INCREASED
     Route: 048
     Dates: start: 2014
  3. VITAMIN C [Concomitant]
     Active Substance: ASCORBIC ACID
     Indication: PRODUCT USED FOR UNKNOWN INDICATION
     Route: 048
     Dates: start: 2015
  4. OMEGA 3 [Concomitant]
     Active Substance: OMEGA-3 FATTY ACIDS
     Indication: PRODUCT USED FOR UNKNOWN INDICATION
     Route: 048
     Dates: start: 2013
  5. VITAMIN D [Concomitant]
     Active Substance: CHOLECALCIFEROL
     Indication: VITAMIN SUPPLEMENTATION
     Route: 048
     Dates: start: 2014
  6. MIOSAN [Concomitant]
     Active Substance: CYCLOBENZAPRINE
     Indication: MUSCLE RELAXANT THERAPY
     Route: 048
     Dates: start: 201604
  7. HUMIRA [Suspect]
     Active Substance: ADALIMUMAB
     Indication: ANKYLOSING SPONDYLITIS
     Route: 058
     Dates: start: 20120101

REACTIONS (8)
  - Suture related complication [Not Recovered/Not Resolved]
  - Incision site erythema [Not Recovered/Not Resolved]
  - Impaired healing [Not Recovered/Not Resolved]
  - Ankylosing spondylitis [Unknown]
  - Incision site swelling [Not Recovered/Not Resolved]
  - Lipoma [Not Recovered/Not Resolved]
  - Arthropathy [Unknown]
  - Sinusitis [Recovering/Resolving]

NARRATIVE: CASE EVENT DATE: 2014
